FAERS Safety Report 7254171-2 (Version None)
Quarter: 2011Q1

REPORT INFORMATION
  Report Type: 
  Country: None (occurrence: None)
  Receive Date: 20110129
  Receipt Date: 20100210
  Transmission Date: 20110831
  Serious: No
  Sender: FDA-Public Use
  Company Number: US-ABBOTT-10P-163-0626219-00

PATIENT
  Sex: Female
  Weight: 77.18 kg

DRUGS (3)
  1. TARCEVA [Concomitant]
     Indication: LUNG NEOPLASM MALIGNANT
     Dates: start: 20090901
  2. METHOTREXATE [Concomitant]
     Indication: RHEUMATOID ARTHRITIS
  3. HUMIRA [Suspect]
     Indication: RHEUMATOID ARTHRITIS
     Route: 058
     Dates: start: 20091201, end: 20100201

REACTIONS (2)
  - EYE INFECTION [None]
  - IMPETIGO [None]
